FAERS Safety Report 12775950 (Version 2)
Quarter: 2017Q2

REPORT INFORMATION
  Report Type: Spontaneous
  Country: GB (occurrence: GB)
  Receive Date: 20160923
  Receipt Date: 20170623
  Transmission Date: 20170830
  Serious: Yes (Disabling)
  Sender: FDA-Public Use
  Company Number: GB-BAYER-2015-409953

PATIENT
  Sex: Female

DRUGS (1)
  1. BETAFERON [Suspect]
     Active Substance: INTERFERON BETA-1B
     Indication: MULTIPLE SCLEROSIS
     Dosage: 250 ?G, QOD
     Route: 058
     Dates: start: 20070522

REACTIONS (6)
  - Inappropriate schedule of drug administration [None]
  - Device malfunction [None]
  - Skin disorder [None]
  - Drug dose omission [None]
  - Pain [None]
  - Wheelchair user [Unknown]

NARRATIVE: CASE EVENT DATE: 2016
